FAERS Safety Report 8628741 (Version 3)
Quarter: 2013Q3

REPORT INFORMATION
  Report Type: Report from Study
  Country: FR (occurrence: FR)
  Receive Date: 20120621
  Receipt Date: 20130802
  Transmission Date: 20140515
  Serious: Yes (Death, Hospitalization)
  Sender: FDA-Public Use
  Company Number: FR-ROCHE-760185

PATIENT
  Age: 61 Year
  Sex: Male
  Weight: 65 kg

DRUGS (26)
  1. BEVACIZUMAB [Suspect]
     Indication: LUNG NEOPLASM MALIGNANT
     Route: 042
     Dates: start: 20101214, end: 20110125
  2. EPOETIN ALFA [Suspect]
     Indication: ANAEMIA
     Route: 058
     Dates: start: 20110207, end: 20110214
  3. AMIODARONE [Suspect]
     Indication: ARRHYTHMIA
     Route: 048
     Dates: start: 20110213, end: 20111208
  4. AMIODARONE [Suspect]
     Indication: CORONARY ARTERY DISEASE
  5. BISOPROLOL [Concomitant]
     Indication: CORONARY ARTERY DISEASE
     Route: 048
  6. BISOPROLOL [Concomitant]
     Dosage: ONGOING UNTIL TIME OF DEATH.
     Route: 048
  7. PANTOPRAZOLE [Concomitant]
     Indication: PROPHYLAXIS AGAINST GASTROINTESTINAL ULCER
     Dosage: ONGOING UNTIL TIME OF DEATH.
     Route: 048
  8. ACETYLSALICYLATE LYSINE [Concomitant]
     Indication: CORONARY ARTERY DISEASE
     Dosage: ONGOING UNTIL TIME OF DEATH.
     Route: 048
  9. CLOPIDOGREL [Concomitant]
     Indication: CORONARY ARTERY DISEASE
     Dosage: ONGOING UNTIL TIME OF DEATH
     Route: 048
  10. ACID FOLIC [Concomitant]
     Indication: LUNG NEOPLASM MALIGNANT
     Route: 048
  11. TIOTROPIUM BROMIDE [Concomitant]
     Indication: CHRONIC OBSTRUCTIVE PULMONARY DISEASE
     Dosage: ONGOING UNTIL TIME OF DEATH
     Route: 050
  12. PEGFILGRASTIM [Concomitant]
     Indication: LUNG NEOPLASM MALIGNANT
     Route: 058
     Dates: start: 20100105, end: 20100126
  13. ONDANSETRON [Concomitant]
     Indication: LUNG NEOPLASM MALIGNANT
     Route: 048
     Dates: start: 20100125, end: 20100130
  14. CARBOPLATIN [Concomitant]
     Indication: LUNG NEOPLASM MALIGNANT
     Dosage: ONGOING UNTIL TIME OF DEATH.
     Route: 042
  15. PACLITAXEL [Concomitant]
     Indication: LUNG NEOPLASM MALIGNANT
     Route: 042
     Dates: start: 20110125, end: 20110125
  16. ENOXAPARINE SODIQUE [Concomitant]
     Indication: LUNG NEOPLASM MALIGNANT
     Route: 058
  17. PARACETAMOL [Concomitant]
     Indication: LUNG NEOPLASM MALIGNANT
     Route: 048
  18. TRAMADOL [Concomitant]
     Indication: LUNG NEOPLASM MALIGNANT
     Route: 048
  19. VENOFER [Concomitant]
     Indication: ANAEMIA
     Route: 042
  20. FONDAPARINUX SODIUM [Concomitant]
     Indication: CORONARY ARTERY DISEASE
     Dosage: ONGOING UNTIL TIME OF DEATH
     Route: 058
     Dates: start: 20111207
  21. ATORVASTATIN [Concomitant]
     Indication: CORONARY ARTERY DISEASE
     Dosage: ONGOING UNTIL TIME OF DEATH
     Route: 048
     Dates: start: 20101207
  22. BROMAZEPAM [Concomitant]
     Indication: ANXIETY
     Dosage: ONGOING UNTIL TIME OF DEATH.
     Route: 048
     Dates: start: 2011
  23. TRINITRINE [Concomitant]
     Indication: CORONARY ARTERY DISEASE
     Dosage: ONGOING UNTIL TIME OF DEATH.
     Route: 003
     Dates: start: 2011
  24. AMLODIPINE [Concomitant]
     Indication: CORONARY ARTERY DISEASE
     Dosage: ONGOING UNTIL TIME OF DEATH.
     Route: 048
     Dates: start: 2011
  25. CARBIMAZOLE [Concomitant]
     Indication: HYPERTHYROIDISM
     Dosage: ONGOING UNTIL TIME OF DEATH.
     Route: 048
     Dates: start: 20111214
  26. IVABRADINE [Concomitant]
     Indication: CORONARY ARTERY DISEASE
     Route: 048
     Dates: start: 2011, end: 20111207

REACTIONS (3)
  - Acute coronary syndrome [Fatal]
  - Hyperthyroidism [Not Recovered/Not Resolved]
  - Acute coronary syndrome [Not Recovered/Not Resolved]
